FAERS Safety Report 9393058 (Version 1)
Quarter: 2013Q3

REPORT INFORMATION
  Report Type: Spontaneous
  Country: US (occurrence: US)
  Receive Date: 20130710
  Receipt Date: 20130710
  Transmission Date: 20140515
  Serious: Yes (Other)
  Sender: FDA-Public Use
  Company Number: US-ASTRAZENECA-2013SE50269

PATIENT
  Age: 28 Year
  Sex: Male
  Weight: 117.9 kg

DRUGS (6)
  1. SEROQUEL [Suspect]
     Dosage: 400 MG
     Route: 048
     Dates: end: 2011
  2. SEROQUEL [Suspect]
     Dosage: 600 MG
     Route: 048
     Dates: start: 20130622, end: 201306
  3. SEROQUEL [Suspect]
     Dosage: 400 MG
     Route: 048
     Dates: start: 201305, end: 201306
  4. SEROQUEL [Suspect]
     Dosage: 800 MG
     Route: 048
     Dates: start: 20130617, end: 201306
  5. SEROQUEL [Suspect]
     Dosage: 1000 MG
     Route: 048
     Dates: start: 201306
  6. SEROQUEL [Suspect]
     Dosage: 800 MG
     Route: 048

REACTIONS (3)
  - Suicidal ideation [Unknown]
  - Agitation [Unknown]
  - Drug ineffective [Unknown]
